FAERS Safety Report 20702907 (Version 2)
Quarter: 2022Q2

REPORT INFORMATION
  Report Type: Spontaneous
  Country: US (occurrence: None)
  Receive Date: 20220412
  Receipt Date: 20220505
  Transmission Date: 20220720
  Serious: No
  Sender: FDA-Public Use
  Company Number: 2022A129794

PATIENT
  Sex: Female
  Weight: 53.5 kg

DRUGS (1)
  1. BREZTRI [Suspect]
     Active Substance: BUDESONIDE\FORMOTEROL\GLYCOPYRROLATE
     Indication: Chronic obstructive pulmonary disease
     Dosage: 160MCG/9MCG/4.8MCG, 2 INHALATIONS TWICE A DAY
     Route: 055

REACTIONS (9)
  - Cough [Unknown]
  - Ageusia [Unknown]
  - Visual impairment [Unknown]
  - Cataract [Unknown]
  - Body height decreased [Unknown]
  - Intentional device misuse [Unknown]
  - Device defective [Unknown]
  - Device delivery system issue [Unknown]
  - Wrong technique in device usage process [Unknown]
